FAERS Safety Report 6747067-3 (Version None)
Quarter: 2010Q2

REPORT INFORMATION
  Report Type: 
  Country: None (occurrence: None)
  Receive Date: 20100528
  Receipt Date: 20100525
  Transmission Date: 20101027
  Serious: Yes (Other)
  Sender: FDA-Public Use
  Company Number: US-PFIZER INC-2010066255

PATIENT

DRUGS (1)
  1. VISTARIL [Suspect]
     Dosage: UNK
     Route: 030
     Dates: start: 20030101

REACTIONS (2)
  - BURNS THIRD DEGREE [None]
  - INJECTION SITE NECROSIS [None]
